FAERS Safety Report 4648394-6 (Version None)
Quarter: 2005Q2

REPORT INFORMATION
  Report Type: 
  Country: None (occurrence: None)
  Receive Date: 20050429
  Receipt Date: 20031030
  Transmission Date: 20051028
  Serious: Yes (Hospitalization)
  Sender: FDA-Public Use
  Company Number: ES-ABBOTT-03P-144-0239169-00

PATIENT
  Sex: Female
  Weight: 61 kg

DRUGS (17)
  1. HUMIRA [Suspect]
     Indication: RHEUMATOID ARTHRITIS
     Dosage: 40 MG
     Route: 058
     Dates: start: 20030902, end: 20031014
  2. HUMIRA [Suspect]
     Dates: start: 20031212, end: 20040120
  3. SULFASALAZINE [Concomitant]
     Indication: RHEUMATOID ARTHRITIS
     Route: 048
     Dates: start: 19960528, end: 20010508
  4. CHLOROQUINE PHOSPHATE [Concomitant]
     Indication: RHEUMATOID ARTHRITIS
     Route: 048
     Dates: start: 19960528, end: 19970429
  5. METHOTREXATE [Concomitant]
     Indication: RHEUMATOID ARTHRITIS
     Route: 030
     Dates: start: 19960528, end: 20010313
  6. CYCLOSPORINE [Concomitant]
     Indication: RHEUMATOID ARTHRITIS
     Route: 048
     Dates: start: 19970314, end: 19981218
  7. INFLIXIMAB [Concomitant]
     Indication: RHEUMATOID ARTHRITIS
     Route: 042
     Dates: start: 20000901, end: 20020917
  8. LEFLUNOMIDE [Concomitant]
     Indication: RHEUMATOID ARTHRITIS
     Route: 048
     Dates: start: 20010313
  9. MIRTAZAPINE [Concomitant]
     Indication: DEPRESSION
     Route: 048
  10. LORAZEPAM [Concomitant]
     Indication: DEPRESSION
     Route: 048
  11. METILDIGOXIN [Concomitant]
     Indication: ATRIAL FIBRILLATION
     Route: 048
  12. ACENOCOUMAROL [Concomitant]
     Indication: ATRIAL FIBRILLATION
     Route: 048
  13. ESPIRINOLACTONA [Concomitant]
     Indication: HYPERTENSION
     Route: 048
  14. ESPIRINOLACTONA [Concomitant]
     Indication: OEDEMA
  15. TORASENIDA [Concomitant]
     Indication: HYPERTENSION
     Route: 048
  16. TORASENIDA [Concomitant]
     Indication: OEDEMA
  17. AZATYOPRINE [Concomitant]
     Indication: RHEUMATOID ARTHRITIS
     Route: 048
     Dates: start: 19970429, end: 20000914

REACTIONS (4)
  - BLINDNESS TRANSIENT [None]
  - CORNEAL ABSCESS [None]
  - ENDOPHTHALMITIS [None]
  - STAPHYLOCOCCAL INFECTION [None]
